FAERS Safety Report 8505970 (Version 2)
Quarter: 2013Q2

REPORT INFORMATION
  Report Type: Report from Study
  Country: CA (occurrence: CA)
  Receive Date: 20120412
  Receipt Date: 20130401
  Transmission Date: 20140414
  Serious: Yes (Other)
  Sender: FDA-Public Use
  Company Number: CA-ROCHE-1056139

PATIENT
  Age: 23 Year
  Sex: Male
  Weight: 68 kg

DRUGS (9)
  1. TOCILIZUMAB [Suspect]
     Indication: RHEUMATOID ARTHRITIS
     Route: 042
     Dates: start: 20120104
  2. TOCILIZUMAB [Suspect]
     Route: 065
     Dates: start: 20120330
  3. TOCILIZUMAB [Suspect]
     Route: 065
     Dates: start: 20120427
  4. TOCILIZUMAB [Suspect]
     Route: 065
     Dates: start: 20120919
  5. METHOTREXATE [Concomitant]
  6. PREDNISONE [Concomitant]
  7. ACTONEL [Concomitant]
  8. FOLIC ACID [Concomitant]
  9. LANSOPRAZOLE [Concomitant]

REACTIONS (3)
  - Weight increased [Unknown]
  - Sinusitis [Recovered/Resolved]
  - Weight decreased [Recovering/Resolving]
